FAERS Safety Report 19502282 (Version 3)
Quarter: 2021Q3

REPORT INFORMATION
  Report Type: Spontaneous
  Country: US (occurrence: US)
  Receive Date: 20210707
  Receipt Date: 20210714
  Transmission Date: 20211014
  Serious: No
  Sender: FDA-Public Use
  Company Number: US-BEH-2021133704

PATIENT
  Sex: Male

DRUGS (1)
  1. HIZENTRA [Suspect]
     Active Substance: HUMAN IMMUNOGLOBULIN G
     Dosage: 9 GRAM, QW
     Route: 065

REACTIONS (4)
  - Infusion site discolouration [Unknown]
  - Injection site haemorrhage [Unknown]
  - Product administration error [Unknown]
  - Infusion site extravasation [Unknown]
